FAERS Safety Report 5548069-5 (Version None)
Quarter: 2007Q4

REPORT INFORMATION
  Report Type: 
  Country: None (occurrence: None)
  Receive Date: 20071206
  Receipt Date: 20071130
  Transmission Date: 20080405
  Serious: Yes (Other)
  Sender: FDA-Public Use
  Company Number: 2007SP024139

PATIENT
  Age: 35 Year
  Sex: Female

DRUGS (1)
  1. DESLORATADINE [Suspect]
     Indication: ALLERGENIC DESENSITISATION PROCEDURE
     Dosage: 1 DF; PO
     Route: 048

REACTIONS (1)
  - ANGIOEDEMA [None]
